FAERS Safety Report 10535432 (Version 3)
Quarter: 2015Q3

REPORT INFORMATION
  Report Type: Spontaneous
  Country: CA (occurrence: CA)
  Receive Date: 20141022
  Receipt Date: 20150813
  Transmission Date: 20151125
  Serious: Yes (Other)
  Sender: FDA-Public Use
  Company Number: CA-GLAXOSMITHKLINE-CA2014GSK006716

PATIENT
  Sex: Female

DRUGS (1)
  1. TAFINLAR [Suspect]
     Active Substance: DABRAFENIB MESYLATE
     Indication: METASTATIC MALIGNANT MELANOMA
     Dosage: 300 MG, QD
     Dates: end: 2014

REACTIONS (7)
  - Skin disorder [Unknown]
  - Chills [Unknown]
  - Rash macular [Unknown]
  - Cough [Unknown]
  - Acrochordon [Unknown]
  - Cancer surgery [Unknown]
  - Malignant neoplasm of unknown primary site [Unknown]
